FAERS Safety Report 8555226-2 (Version None)
Quarter: 2012Q3

REPORT INFORMATION
  Report Type: 
  Country: None (occurrence: None)
  Receive Date: 20120731
  Receipt Date: 20120723
  Transmission Date: 20120928
  Serious: Yes (Other)
  Sender: FDA-Public Use
  Company Number: US-009507513-1207USA010602

PATIENT

DRUGS (1)
  1. ZOCOR [Suspect]
     Dosage: 80 MG, UNK
     Route: 048

REACTIONS (9)
  - CARPAL TUNNEL SYNDROME [None]
  - SKIN HAEMORRHAGE [None]
  - VITILIGO [None]
  - IMMUNE SYSTEM DISORDER [None]
  - MYALGIA [None]
  - ARTHRALGIA [None]
  - GAIT DISTURBANCE [None]
  - HEADACHE [None]
  - DRY SKIN [None]
